FAERS Safety Report 8266743-7 (Version None)
Quarter: 2012Q2

REPORT INFORMATION
  Report Type: 
  Country: None (occurrence: None)
  Receive Date: 20120409
  Receipt Date: 20120327
  Transmission Date: 20120825
  Serious: No
  Sender: FDA-Public Use
  Company Number: US-BIOGENIDEC-2011BI014371

PATIENT
  Sex: Female

DRUGS (2)
  1. TYSABRI [Suspect]
     Indication: MULTIPLE SCLEROSIS
     Route: 042
     Dates: start: 20081021, end: 20110819
  2. PROVIGAL [Concomitant]
     Indication: FATIGUE

REACTIONS (12)
  - EXOSTOSIS [None]
  - ARTHRITIS [None]
  - FALL [None]
  - LYMPHOEDEMA [None]
  - DEPRESSED MOOD [None]
  - STRESS [None]
  - PROGRESSIVE MULTIPLE SCLEROSIS [None]
  - SINUS CONGESTION [None]
  - WEIGHT INCREASED [None]
  - AMNESIA [None]
  - LIGAMENT RUPTURE [None]
  - CONSTIPATION [None]
